FAERS Safety Report 11440908 (Version 1)
Quarter: 2015Q3

REPORT INFORMATION
  Report Type: Spontaneous
  Country: US (occurrence: US)
  Receive Date: 20150901
  Receipt Date: 20150901
  Transmission Date: 20151125
  Serious: No
  Sender: FDA-Public Use
  Company Number: US-ROCHE-1089153

PATIENT
  Sex: Male

DRUGS (12)
  1. PEGASYS [Suspect]
     Active Substance: PEGINTERFERON ALFA-2A
     Indication: HEPATITIS C
     Dosage: THERAPY 1
     Route: 065
  2. RIBAVIRIN. [Suspect]
     Active Substance: RIBAVIRIN
     Dosage: THERAPY 2
     Route: 065
  3. TELAPREVIR [Suspect]
     Active Substance: TELAPREVIR
     Indication: HEPATITIS C
     Dosage: THERAPY 1
     Route: 065
  4. TELAPREVIR [Suspect]
     Active Substance: TELAPREVIR
     Dosage: THERAPY 2
     Route: 065
  5. PEGASYS [Suspect]
     Active Substance: PEGINTERFERON ALFA-2A
     Dosage: THERAPY 3
     Route: 065
  6. PEGASYS [Suspect]
     Active Substance: PEGINTERFERON ALFA-2A
     Dosage: THERAPY 2
     Route: 065
  7. TELAPREVIR [Suspect]
     Active Substance: TELAPREVIR
     Dosage: THERAPY 4 STARTED 13 WEEKS AGO
     Route: 065
     Dates: start: 20120427
  8. PEGASYS [Suspect]
     Active Substance: PEGINTERFERON ALFA-2A
     Dosage: THERAPY 4 STARTED 13 WEEKS AGO
     Route: 065
     Dates: start: 20120427
  9. RIBAVIRIN. [Suspect]
     Active Substance: RIBAVIRIN
     Dosage: THERAPY 4 STARTED 13 WEEKS AGO
     Route: 065
     Dates: start: 20120427
  10. RIBAVIRIN. [Suspect]
     Active Substance: RIBAVIRIN
     Indication: HEPATITIS C
     Dosage: THERAPY 1
     Route: 065
  11. RIBAVIRIN. [Suspect]
     Active Substance: RIBAVIRIN
     Dosage: THERAPY 3
     Route: 065
  12. TELAPREVIR [Suspect]
     Active Substance: TELAPREVIR
     Dosage: THERAPY 3
     Route: 065

REACTIONS (1)
  - Syringe issue [Unknown]
